FAERS Safety Report 4422449-3 (Version None)
Quarter: 2004Q3

REPORT INFORMATION
  Report Type: 
  Country: None (occurrence: None)
  Receive Date: 20040806
  Receipt Date: 20040706
  Transmission Date: 20050211
  Serious: Yes (Hospitalization, Other)
  Sender: FDA-Public Use
  Company Number: USA040772833

PATIENT
  Sex: Male

DRUGS (7)
  1. ZYPREXA [Suspect]
     Indication: BIPOLAR DISORDER
     Dosage: 15 MG DAY
     Dates: start: 20020101, end: 20040101
  2. HYDROCHLOROTHIAZIDE [Concomitant]
  3. ELAVIL [Concomitant]
  4. XANAX (ALPRAZOLAM DUM) [Concomitant]
  5. MORPHINE [Concomitant]
  6. INSULIN [Concomitant]
  7. AMARYL [Concomitant]

REACTIONS (6)
  - ACCIDENT AT WORK [None]
  - CARDIAC DISORDER [None]
  - DIABETES MELLITUS [None]
  - DRUG INEFFECTIVE [None]
  - INTERVERTEBRAL DISC INJURY [None]
  - RENAL DISORDER [None]
